FAERS Safety Report 5471710-2 (Version None)
Quarter: 2007Q3

REPORT INFORMATION
  Report Type: 
  Country: None (occurrence: None)
  Receive Date: 20070928
  Receipt Date: 20070411
  Transmission Date: 20080115
  Serious: No
  Sender: FDA-Public Use
  Company Number: US-BRISTOL-MYERS SQUIBB COMPANY-13746342

PATIENT

DRUGS (3)
  1. DEFINITY [Suspect]
  2. DOBUTAMINE HCL [Concomitant]
  3. ATROPINE SULFATE [Concomitant]

REACTIONS (1)
  - URTICARIA [None]
